FAERS Safety Report 4285765-4 (Version None)
Quarter: 2004Q1

REPORT INFORMATION
  Report Type: 
  Country: None (occurrence: None)
  Receive Date: 20040205
  Receipt Date: 20040108
  Transmission Date: 20041129
  Serious: Yes (Hospitalization)
  Sender: FDA-Public Use
  Company Number: US-BRISTOL-MYERS SQUIBB COMPANY-12472643

PATIENT
  Age: 49 Year
  Sex: Female

DRUGS (9)
  1. ARIPIPRAZOLE [Suspect]
     Indication: BIPOLAR DISORDER
     Route: 048
     Dates: start: 20031022
  2. PERPHENAZINE [Suspect]
  3. NPH ILETIN II [Concomitant]
     Dosage: 25 UNITS QAM, 50 UNITS QPM
  4. REGULAR INSULIN [Concomitant]
     Dosage: BEFORE BREAKFAST
  5. ROSIGLITAZONE MALEATE [Concomitant]
  6. LISINOPRIL [Concomitant]
  7. SIMVASTATIN [Concomitant]
     Dosage: QHS
  8. DEPAKOTE [Concomitant]
     Dates: end: 20031022
  9. ZOLOFT [Concomitant]
     Dates: end: 20031022

REACTIONS (13)
  - ANAPHYLACTIC REACTION [None]
  - BLOOD CREATININE INCREASED [None]
  - BLOOD GLUCOSE INCREASED [None]
  - CELLULITIS [None]
  - CLOSTRIDIUM COLITIS [None]
  - DERMATITIS EXFOLIATIVE [None]
  - HAEMOGLOBIN DECREASED [None]
  - HYPOALBUMINAEMIA [None]
  - HYPOPROTEINAEMIA [None]
  - METABOLIC ACIDOSIS [None]
  - NEUROLEPTIC MALIGNANT SYNDROME [None]
  - STAPHYLOCOCCAL BACTERAEMIA [None]
  - URINARY TRACT INFECTION [None]
